FAERS Safety Report 7185501-8 (Version None)
Quarter: 2010Q4

REPORT INFORMATION
  Report Type: 
  Country: None (occurrence: None)
  Receive Date: 20101222
  Receipt Date: 20101028
  Transmission Date: 20110411
  Serious: No
  Sender: FDA-Public Use
  Company Number: US-TYCO HEALTHCARE/MALLINCKRODT-T201002162

PATIENT
  Sex: Female
  Weight: 66.667 kg

DRUGS (4)
  1. TECHNETIUM TC 99M SESTAMIBI [Suspect]
     Indication: CARDIAC STRESS TEST
     Dosage: UNK
     Dates: start: 20101005, end: 20101005
  2. ULTRA-TECHNEKOW [Concomitant]
     Indication: CARDIAC STRESS TEST
     Dosage: 8 MCI
     Dates: start: 20101005, end: 20101005
  3. ULTRA-TECHNEKOW [Concomitant]
     Dosage: 23 MCI
     Dates: start: 20101005, end: 20101005
  4. ALL OTHER THERAPEUTIC PRODUCTS [Concomitant]

REACTIONS (1)
  - DRUG INEFFECTIVE [None]
